FAERS Safety Report 9776848 (Version 1)
Quarter: 2013Q4

REPORT INFORMATION
  Report Type: Report from Study
  Country: US (occurrence: US)
  Receive Date: 20131221
  Receipt Date: 20131221
  Transmission Date: 20140711
  Serious: Yes (Hospitalization, Other)
  Sender: FDA-Public Use
  Company Number: US-ROCHE-1322506

PATIENT
  Age: 59 Year
  Sex: Male
  Weight: 68.04 kg

DRUGS (4)
  1. BEVACIZUMAB [Suspect]
     Indication: NON-SMALL CELL LUNG CANCER
     Dosage: OVER 30-90 MIN ON DAY 1Q 3 WKS, FOR UP TO 1 YEAR.?MOST RECENT DOSE 2/OCT/2013?TOTAL DOSE ADMINISTERE
     Route: 042
     Dates: start: 20130813
  2. VINORELBINE [Suspect]
     Indication: NON-SMALL CELL LUNG CANCER
     Dosage: OVER 10 MIN ON DAYS 1 AND 8
     Route: 042
     Dates: start: 20130813
  3. CISPLATIN [Suspect]
     Indication: NON-SMALL CELL LUNG CANCER
     Dosage: OVER 60 MIN ON DAY 1?MOST RECENT DOSE 9/OCT/2013?TOTAL DOSE ADMINISTERED THIS COURSE 112 MG
     Route: 042
     Dates: start: 20130813
  4. PEGFILGRASTIM [Concomitant]
     Route: 065
     Dates: start: 20131011

REACTIONS (6)
  - Pleural infection [Recovered/Resolved with Sequelae]
  - Diarrhoea [Recovered/Resolved]
  - Vomiting [Recovered/Resolved]
  - Anaemia [Recovered/Resolved]
  - Febrile neutropenia [Recovered/Resolved]
  - Atrial fibrillation [Recovered/Resolved]
